FAERS Safety Report 8278524-9 (Version None)
Quarter: 2012Q2

REPORT INFORMATION
  Report Type: 
  Country: None (occurrence: None)
  Receive Date: 20120412
  Receipt Date: 20120227
  Transmission Date: 20120825
  Serious: Yes (Other)
  Sender: FDA-Public Use
  Company Number: US-ASTRAZENECA-2012SE13311

PATIENT
  Age: 40 Year
  Sex: Male
  Weight: 104.3 kg

DRUGS (13)
  1. BUPROPION HCL [Concomitant]
     Indication: DEPRESSION
  2. PRISTIQ [Suspect]
     Indication: MAJOR DEPRESSION
     Route: 065
     Dates: start: 20100101
  3. NEXIUM [Suspect]
     Indication: GASTROOESOPHAGEAL REFLUX DISEASE
     Route: 048
  4. UNSPECIFIED ANTIBIOTIC [Suspect]
     Indication: COUGH
     Route: 065
  5. RESTORIL [Concomitant]
  6. OMEPRAZOLE [Suspect]
     Indication: GASTROOESOPHAGEAL REFLUX DISEASE
     Route: 048
  7. AZITHROMYCIN [Suspect]
     Indication: COUGH
     Route: 065
     Dates: start: 20120127
  8. TESSALON [Suspect]
     Route: 065
  9. SINGULAIR [Concomitant]
     Indication: ASTHMA
  10. AUGMENTIN '125' [Suspect]
     Indication: COUGH
     Route: 065
  11. LAMISIL [Concomitant]
     Indication: TINEA PEDIS
  12. COZAAR [Concomitant]
     Indication: BLOOD PRESSURE ABNORMAL
  13. CIPROFLOXACIN HCL [Suspect]
     Indication: COUGH
     Route: 065

REACTIONS (4)
  - COUGH [None]
  - GASTROOESOPHAGEAL REFLUX DISEASE [None]
  - NASOPHARYNGITIS [None]
  - DRUG INEFFECTIVE [None]
